FAERS Safety Report 21782037 (Version 1)
Quarter: 2022Q4

REPORT INFORMATION
  Report Type: Spontaneous
  Country: US (occurrence: None)
  Receive Date: 20221223
  Receipt Date: 20221223
  Transmission Date: 20230113
  Serious: Yes (Hospitalization)
  Sender: FDA-Public Use
  Company Number: None

PATIENT
  Age: 74 Year
  Sex: Male
  Weight: 83.25 kg

DRUGS (2)
  1. PAXLOVID [Suspect]
     Active Substance: NIRMATRELVIR\RITONAVIR
     Indication: COVID-19
     Dosage: FREQUENCY : TWICE A DAY;?
     Route: 048
     Dates: start: 20221024, end: 20221028
  2. WARFARIN [Concomitant]
     Active Substance: WARFARIN
     Dates: start: 20140401

REACTIONS (4)
  - Headache [None]
  - Tension headache [None]
  - Nausea [None]
  - Subdural haematoma [None]

NARRATIVE: CASE EVENT DATE: 20221216
